FAERS Safety Report 9557741 (Version 2)
Quarter: 2013Q3

REPORT INFORMATION
  Report Type: Spontaneous
  Country: FR (occurrence: None)
  Receive Date: 20130917
  Receipt Date: 20130927
  Transmission Date: 20140515
  Serious: Yes (Hospitalization)
  Sender: FDA-Public Use
  Company Number: 2013037879

PATIENT
  Age: 41 Year
  Sex: Female

DRUGS (9)
  1. PRIVIGEN (IMMUNE GLOBULIN INTRAVENOUS (HUMAN) 10% LIQUID) [Suspect]
     Indication: IMMUNE THROMBOCYTOPENIC PURPURA
     Dosage: 10 G, 6 VIALS
     Dates: start: 20130710, end: 20130715
  2. PRIVIGEN (IMMUNE GLOBULIN INTRAVENOUS (HUMAN) 10% LIQUID) [Suspect]
     Indication: SINUSITIS
     Dosage: 10 G, 6 VIALS
     Dates: start: 20130710, end: 20130715
  3. CORTANCYL (PREDNISONE) [Suspect]
     Indication: IMMUNE THROMBOCYTOPENIC PURPURA
     Route: 048
     Dates: start: 20130710, end: 20130715
  4. CORTANCYL (PREDNISONE) [Suspect]
     Indication: SINUSITIS
     Route: 048
     Dates: start: 20130710, end: 20130715
  5. CEFOTAXIME (CEFOTAXIME)(2 GM, UNKNOWN)(CEFOTAXIME) [Concomitant]
     Indication: SINUSITIS
     Route: 042
     Dates: start: 20130710, end: 20130717
  6. TAVANIC [Suspect]
     Indication: SINUSITIS
     Route: 042
     Dates: start: 20130710, end: 20130717
  7. TRIFLUCAN (FLUCONAZOLE) [Concomitant]
  8. MACROLIDES (MACROLIDES) [Concomitant]
  9. CLAFORAN (CEFOTAXIME SODIUM) [Concomitant]

REACTIONS (4)
  - Haemolytic anaemia [None]
  - Thrombocytosis [None]
  - Drug intolerance [None]
  - Hepatic steatosis [None]
